FAERS Safety Report 4412910-X (Version None)
Quarter: 2004Q3

REPORT INFORMATION
  Report Type: 
  Country: None (occurrence: None)
  Receive Date: 20040730
  Receipt Date: 20040722
  Transmission Date: 20050211
  Serious: Yes (Hospitalization)
  Sender: FDA-Public Use
  Company Number: 2004UW15479

PATIENT
  Age: 74 Year
  Sex: Female
  Weight: 61.2356 kg

DRUGS (9)
  1. CRESTOR [Suspect]
     Indication: HYPERCHOLESTEROLAEMIA
     Dates: start: 20040301
  2. CRESTOR [Suspect]
     Indication: PROPHYLAXIS
     Dates: start: 20040301
  3. DEMADEX [Concomitant]
  4. CLONIDINE HCL [Concomitant]
  5. TOPROL-XL [Concomitant]
  6. PREVACID [Concomitant]
  7. PREDNISONE [Concomitant]
  8. COUMADIN [Concomitant]
  9. NEBULIZER MEDICATIONS [Concomitant]

REACTIONS (3)
  - CONTUSION [None]
  - DYSPNOEA [None]
  - OEDEMA PERIPHERAL [None]
